FAERS Safety Report 25353808 (Version 1)
Quarter: 2025Q2

REPORT INFORMATION
  Report Type: Spontaneous
  Country: JP (occurrence: JP)
  Receive Date: 20250523
  Receipt Date: 20250523
  Transmission Date: 20250716
  Serious: Yes (Hospitalization)
  Sender: ALEXION PHARMACEUTICALS
  Company Number: JP-AstraZeneca-CH-00870384A

PATIENT
  Age: 59 Year
  Weight: 90 kg

DRUGS (1)
  1. ULTOMIRIS [Suspect]
     Active Substance: RAVULIZUMAB-CWVZ
     Indication: Myasthenia gravis
     Dosage: 3300 MILLIGRAM, Q8W

REACTIONS (2)
  - Respiratory disorder [Recovering/Resolving]
  - Eyelid ptosis [Recovering/Resolving]
